FAERS Safety Report 5868125-1 (Version None)
Quarter: 2008Q3

REPORT INFORMATION
  Report Type: 
  Country: None (occurrence: None)
  Receive Date: 20080902
  Receipt Date: 20080514
  Transmission Date: 20090109
  Serious: No
  Sender: FDA-Public Use
  Company Number: US-ABBOTT-08P-163-0451774-00

PATIENT
  Age: 57 Year
  Sex: Male

DRUGS (4)
  1. DEPAKOTE ER [Suspect]
     Indication: ANGER
     Route: 048
  2. DEPAKOTE ER [Suspect]
     Indication: POST-TRAUMATIC STRESS DISORDER
  3. RISPERIDONE [Suspect]
     Indication: ANGER
  4. RISPERIDONE [Suspect]
     Indication: POST-TRAUMATIC STRESS DISORDER

REACTIONS (1)
  - PRIAPISM [None]
